FAERS Safety Report 4348860-7 (Version None)
Quarter: 2004Q1

REPORT INFORMATION
  Report Type: 
  Country: None (occurrence: None)
  Receive Date: 20040325
  Receipt Date: 20040217
  Transmission Date: 20041129
  Serious: No
  Sender: FDA-Public Use
  Company Number: USA040259530

PATIENT
  Age: 42 Year
  Sex: Female

DRUGS (3)
  1. FORTEO [Suspect]
     Indication: OSTEOPOROSIS
     Dates: start: 20040215
  2. ACIPHEX [Concomitant]
  3. CALCIUM WITH VITAMIN D [Concomitant]

REACTIONS (1)
  - INJECTION SITE ERYTHEMA [None]
